FAERS Safety Report 5104984-8 (Version None)
Quarter: 2006Q3

REPORT INFORMATION
  Report Type: 
  Country: None (occurrence: None)
  Receive Date: 20060911
  Receipt Date: 20060828
  Transmission Date: 20061208
  Serious: Yes (Other)
  Sender: FDA-Public Use
  Company Number: 2006081282

PATIENT
  Age: 60 Year
  Sex: Male

DRUGS (6)
  1. VIAGRA [Suspect]
     Indication: ERECTILE DYSFUNCTION
     Dosage: 100 MG
  2. ANTIHYPERTENSIVES [Concomitant]
  3. TAMSULOSIN HCL [Concomitant]
  4. HYDROCHLOROTHIAZIDE [Concomitant]
  5. ATENOLOL [Concomitant]
  6. PROTONIX [Concomitant]

REACTIONS (5)
  - DRUG INEFFECTIVE [None]
  - DYSURIA [None]
  - PHARMACEUTICAL PRODUCT COMPLAINT [None]
  - TRANSURETHRAL PROSTATECTOMY [None]
  - URINARY TRACT OBSTRUCTION [None]
